FAERS Safety Report 14202927 (Version 3)
Quarter: 2018Q1

REPORT INFORMATION
  Report Type: Spontaneous
  Country: US (occurrence: US)
  Receive Date: 20171119
  Receipt Date: 20180326
  Transmission Date: 20180508
  Serious: Yes (Hospitalization, Other)
  Sender: FDA-Public Use
  Company Number: US-009507513-1711USA007025

PATIENT
  Age: 70 Year
  Sex: Female
  Weight: 80.3 kg

DRUGS (6)
  1. FOSAMAX [Suspect]
     Active Substance: ALENDRONATE SODIUM
     Indication: PRODUCT USED FOR UNKNOWN INDICATION
     Dosage: UNK
     Route: 048
  2. ENBREL [Suspect]
     Active Substance: ETANERCEPT
     Dosage: 50 MG, QW
     Dates: start: 201710
  3. ENBREL [Suspect]
     Active Substance: ETANERCEPT
     Dosage: 50 MG, QWK
  4. ENBREL [Suspect]
     Active Substance: ETANERCEPT
     Indication: RHEUMATOID ARTHRITIS
     Dosage: 50 MG, QWK
     Dates: start: 20170824
  5. ENBREL [Suspect]
     Active Substance: ETANERCEPT
     Dosage: 50 MG, QWK
     Dates: start: 1990, end: 2003
  6. PROVENTIL [Suspect]
     Active Substance: ALBUTEROL
     Indication: PRODUCT USED FOR UNKNOWN INDICATION
     Dosage: UNK

REACTIONS (12)
  - Hip arthroplasty [Unknown]
  - Bradyphrenia [Unknown]
  - Full blood count decreased [Unknown]
  - Skin papilloma [Unknown]
  - Fall [Unknown]
  - Dizziness [Recovered/Resolved]
  - Adverse reaction [Unknown]
  - Muscle spasms [Unknown]
  - Spinal fracture [Unknown]
  - Diastolic dysfunction [Unknown]
  - Influenza [Unknown]
  - Oral contusion [Recovered/Resolved]

NARRATIVE: CASE EVENT DATE: 2016
